FAERS Safety Report 11054019 (Version 1)
Quarter: 2015Q2

REPORT INFORMATION
  Report Type: Spontaneous
  Country: US (occurrence: US)
  Receive Date: 20150422
  Receipt Date: 20150422
  Transmission Date: 20150821
  Serious: No
  Sender: FDA-Public Use
  Company Number: US-BRISTOL-MYERS SQUIBB COMPANY-BMS-2015-023839

PATIENT
  Sex: Female
  Weight: 58.96 kg

DRUGS (1)
  1. ABILIFY [Suspect]
     Active Substance: ARIPIPRAZOLE
     Indication: ANXIETY DISORDER
     Dosage: 10 MG, QD
     Route: 048
     Dates: start: 2009

REACTIONS (1)
  - Off label use [Recovered/Resolved]
